FAERS Safety Report 13196238 (Version 1)
Quarter: 2017Q1

REPORT INFORMATION
  Report Type: Spontaneous
  Country: US (occurrence: US)
  Receive Date: 20170208
  Receipt Date: 20170208
  Transmission Date: 20170428
  Serious: No
  Sender: FDA-Public Use
  Company Number: US-PFIZER INC-2017047219

PATIENT
  Age: 54 Year
  Sex: Female
  Weight: 59 kg

DRUGS (1)
  1. PREMPRO [Suspect]
     Active Substance: ESTROGENS, CONJUGATED\MEDROXYPROGESTERONE ACETATE
     Indication: HORMONE REPLACEMENT THERAPY
     Dosage: [ESTROGENS CONJUGATED 0.45 MG]/[ MEDROXYPROGESTERONE ACETATE 1.5 MG] ONCE A DAY/TOOK ONE THEN SKIP
     Route: 048

REACTIONS (5)
  - Pain in extremity [Recovering/Resolving]
  - Intentional product misuse [Unknown]
  - Limb discomfort [Recovering/Resolving]
  - Product taste abnormal [Unknown]
  - Musculoskeletal discomfort [Recovering/Resolving]

NARRATIVE: CASE EVENT DATE: 201612
